FAERS Safety Report 18279509 (Version 1)
Quarter: 2020Q3

REPORT INFORMATION
  Report Type: Spontaneous
  Country: CA (occurrence: CA)
  Receive Date: 20200917
  Receipt Date: 20200917
  Transmission Date: 20201103
  Serious: Yes (Life-Threatening, Hospitalization, Other)
  Sender: FDA-Public Use
  Company Number: CA-JNJFOC-20200920055

PATIENT
  Age: 55 Year
  Sex: Female

DRUGS (1)
  1. INVOKANA [Suspect]
     Active Substance: CANAGLIFLOZIN
     Indication: TYPE 2 DIABETES MELLITUS
     Route: 048

REACTIONS (9)
  - Dysarthria [Unknown]
  - Cold sweat [Unknown]
  - Muscle contracture [Unknown]
  - Feeling cold [Unknown]
  - Malaise [Unknown]
  - Facial paralysis [Unknown]
  - Gait inability [Unknown]
  - Diabetic ketoacidosis [Unknown]
  - Diabetic coma [Unknown]
